FAERS Safety Report 13359121 (Version 2)
Quarter: 2017Q2

REPORT INFORMATION
  Report Type: Spontaneous
  Country: BR (occurrence: BR)
  Receive Date: 20170322
  Receipt Date: 20170525
  Transmission Date: 20170830
  Serious: Yes (Hospitalization)
  Sender: FDA-Public Use
  Company Number: BR-ELI_LILLY_AND_COMPANY-BR201703008023

PATIENT
  Sex: Female

DRUGS (2)
  1. HUMULIN N [Concomitant]
     Active Substance: INSULIN HUMAN
     Indication: PRODUCT USED FOR UNKNOWN INDICATION
     Dosage: UNK
  2. HUMALOG [Suspect]
     Active Substance: INSULIN LISPRO
     Indication: BLOOD GLUCOSE INCREASED
     Dosage: UNK, UNKNOWN
     Route: 065

REACTIONS (4)
  - Hyperglycaemia [Recovered/Resolved]
  - Ketoacidosis [Recovered/Resolved]
  - Food poisoning [Recovered/Resolved]
  - Dehydration [Recovered/Resolved]
